FAERS Safety Report 4995003-2 (Version None)
Quarter: 2006Q2

REPORT INFORMATION
  Report Type: 
  Country: None (occurrence: None)
  Receive Date: 20060503
  Receipt Date: 20060422
  Transmission Date: 20061013
  Serious: Yes (Other)
  Sender: FDA-Public Use
  Company Number: 200612567BWH

PATIENT
  Sex: 0

DRUGS (1)
  1. NEXAVAR [Suspect]
     Dosage: ORAL
     Route: 048

REACTIONS (4)
  - GASTROINTESTINAL HAEMORRHAGE [None]
  - GASTROINTESTINAL PERFORATION [None]
  - METASTASES TO SMALL INTESTINE [None]
  - RENAL CELL CARCINOMA STAGE UNSPECIFIED [None]
